FAERS Safety Report 12843495 (Version 2)
Quarter: 2016Q4

REPORT INFORMATION
  Report Type: Report from Study
  Country: CZ (occurrence: CZ)
  Receive Date: 20161013
  Receipt Date: 20161116
  Transmission Date: 20170207
  Serious: Yes (Hospitalization)
  Sender: FDA-Public Use
  Company Number: CZ-B.I. PHARMACEUTICALS,INC./RIDGEFIELD-2016-BI-61352BI

PATIENT
  Age: 63 Year
  Sex: Male
  Weight: 133 kg

DRUGS (1)
  1. BLINDED LINAGLIPTIN [Suspect]
     Active Substance: LINAGLIPTIN
     Indication: TYPE 2 DIABETES MELLITUS
     Route: 048
     Dates: start: 20151216

REACTIONS (1)
  - Hydrocele [Recovered/Resolved]

NARRATIVE: CASE EVENT DATE: 20160822
